FAERS Safety Report 9777507 (Version 6)
Quarter: 2014Q2

REPORT INFORMATION
  Report Type: Spontaneous
  Country: JP (occurrence: JP)
  Receive Date: 20131222
  Receipt Date: 20140414
  Transmission Date: 20141212
  Serious: Yes (Hospitalization)
  Sender: FDA-Public Use
  Company Number: PHHY2013JP127281

PATIENT
  Age: 82 Year
  Sex: Female

DRUGS (4)
  1. EXELON PATCH [Suspect]
     Indication: PAIN
     Dosage: 18 MG (SIX PATCHES OF EXELON 18MG)
     Route: 062
     Dates: end: 20131105
  2. DONEPEZIL [Interacting]
     Indication: MEMORY IMPAIRMENT
     Route: 048
  3. ARICEPT [Concomitant]
     Indication: DEMENTIA ALZHEIMER^S TYPE
     Dosage: 5 MG, DAILY
     Route: 048
  4. MAGMITT [Concomitant]
     Indication: DEMENTIA ALZHEIMER^S TYPE
     Route: 048

REACTIONS (18)
  - Gastroenteritis [Recovered/Resolved]
  - Abdominal pain [Recovering/Resolving]
  - Diarrhoea [Recovered/Resolved]
  - Vomiting [Recovered/Resolved]
  - Nausea [Recovered/Resolved]
  - Dysstasia [Recovered/Resolved]
  - Headache [Recovered/Resolved]
  - Tremor [Recovered/Resolved]
  - Sinus bradycardia [Recovered/Resolved]
  - Heart rate decreased [Unknown]
  - Urinary tract infection [Recovered/Resolved]
  - White blood cell count increased [Recovered/Resolved]
  - Drug administration error [Recovered/Resolved]
  - Wrong technique in drug usage process [Unknown]
  - Accidental exposure to product [Recovered/Resolved]
  - Wrong patient received medication [Unknown]
  - Drug interaction [Unknown]
  - Overdose [Unknown]
